FAERS Safety Report 4707709-0 (Version None)
Quarter: 2005Q2

REPORT INFORMATION
  Report Type: 
  Country: None (occurrence: None)
  Receive Date: 20050629
  Receipt Date: 20050307
  Transmission Date: 20051028
  Serious: No
  Sender: FDA-Public Use
  Company Number: 05P-163-0293041-00

PATIENT
  Age: 72 Year
  Sex: Female
  Weight: 65.7716 kg

DRUGS (5)
  1. HUMIRA [Suspect]
     Indication: RHEUMATOID ARTHRITIS
     Dosage: SEE IMAGE
     Route: 058
     Dates: start: 20040401, end: 20041001
  2. HUMIRA [Suspect]
     Indication: RHEUMATOID ARTHRITIS
     Dosage: SEE IMAGE
     Route: 058
     Dates: start: 20041001
  3. AMITRIPTYLINE HCL [Concomitant]
  4. METFORMIN HCL [Concomitant]
  5. ETODOLAC [Concomitant]

REACTIONS (1)
  - WEIGHT INCREASED [None]
